FAERS Safety Report 23847683 (Version 1)
Quarter: 2024Q2

REPORT INFORMATION
  Report Type: Spontaneous
  Country: US (occurrence: US)
  Receive Date: 20240513
  Receipt Date: 20240513
  Transmission Date: 20240715
  Serious: No
  Sender: FDA-Public Use
  Company Number: US-BIOGEN-2020BI00858591

PATIENT
  Age: 57 Year
  Sex: Female

DRUGS (1)
  1. TYSABRI [Interacting]
     Active Substance: NATALIZUMAB
     Indication: Multiple sclerosis
     Dosage: 5 WEEK DOSING SCHEDULE
     Route: 050
     Dates: start: 20120820

REACTIONS (3)
  - Prescribed underdose [Unknown]
  - Product dose omission issue [Unknown]
  - Attention deficit hyperactivity disorder [Unknown]

NARRATIVE: CASE EVENT DATE: 20200401
